FAERS Safety Report 8943082 (Version 1)
Quarter: 2012Q4

REPORT INFORMATION
  Report Type: 
  Country: US (occurrence: US)
  Receive Date: 20121204
  Receipt Date: 20121204
  Transmission Date: 20130627
  Serious: Yes (Hospitalization, Other)
  Sender: FDA-Public Use
  Company Number: US-PFIZER INC-2012300956

PATIENT
  Age: 82 Year

DRUGS (3)
  1. TIKOSYN [Suspect]
     Dosage: UNK
  2. COUMADIN [Concomitant]
     Dosage: UNK
  3. ASPIRIN [Concomitant]
     Dosage: UNK

REACTIONS (2)
  - Renal failure acute [Unknown]
  - Diverticulum intestinal haemorrhagic [Unknown]
